FAERS Safety Report 10243882 (Version 1)
Quarter: 2014Q2

REPORT INFORMATION
  Report Type: Spontaneous
  Country: US (occurrence: None)
  Receive Date: 20140616
  Receipt Date: 20140616
  Transmission Date: 20141212
  Serious: Yes (Hospitalization)
  Sender: FDA-Public Use
  Company Number: 2397688

PATIENT
  Age: 29 Month
  Sex: Male

DRUGS (5)
  1. VINCRISTINE SULPHATE [Suspect]
     Indication: PRECURSOR B-LYMPHOBLASTIC LYMPHOMA
     Dates: start: 20140407
  2. CLOFARABINE [Suspect]
     Indication: PRECURSOR B-LYMPHOBLASTIC LYMPHOMA
     Dates: start: 20140407
  3. CYCLOPHOSPHAMIDE [Suspect]
     Indication: PRECURSOR B-LYMPHOBLASTIC LYMPHOMA
     Dates: start: 20140407
  4. ETOPOSIDE [Suspect]
     Indication: PRECURSOR B-LYMPHOBLASTIC LYMPHOMA
     Dates: start: 20140407
  5. PEG-L-ASPARAGINASE [Suspect]
     Indication: PRECURSOR B-LYMPHOBLASTIC LYMPHOMA
     Dates: start: 20140407

REACTIONS (2)
  - Hypersensitivity [None]
  - Febrile neutropenia [None]
